FAERS Safety Report 21294529 (Version 1)
Quarter: 2022Q3

REPORT INFORMATION
  Report Type: Spontaneous
  Country: US (occurrence: US)
  Receive Date: 20220905
  Receipt Date: 20220905
  Transmission Date: 20221026
  Serious: Yes (Other)
  Sender: FDA-Public Use
  Company Number: US-SA-SAC20220902000561

PATIENT
  Sex: Male

DRUGS (3)
  1. ZANTAC [Suspect]
     Active Substance: RANITIDINE HYDROCHLORIDE
     Dosage: UNK; PRESCRIPTION RANITIDINE FROM APPROXIMATELY 1980 TO 2019
     Route: 048
     Dates: start: 1980, end: 2019
  2. RANITIDINE HYDROCHLORIDE [Suspect]
     Active Substance: RANITIDINE HYDROCHLORIDE
     Dosage: UNK: OVER THE COUNTER RANITIDINE FROM APPROXIMATELY 1980 TO 2019
     Route: 048
     Dates: start: 1980, end: 2019
  3. RANITIDINE HYDROCHLORIDE [Suspect]
     Active Substance: RANITIDINE HYDROCHLORIDE
     Dosage: UNK;PRESCRIPTION RANITIDINE FROM APPROXIMATELY 1980 TO 2019
     Route: 048
     Dates: start: 1980, end: 2019

REACTIONS (1)
  - Prostate cancer [Unknown]
